FAERS Safety Report 22646304 (Version 1)
Quarter: 2023Q2

REPORT INFORMATION
  Report Type: Spontaneous
  Country: US (occurrence: None)
  Receive Date: 20230623
  Receipt Date: 20230623
  Transmission Date: 20230722
  Serious: No
  Sender: FDA-Public Use
  Company Number: None

PATIENT
  Age: 39 Year
  Sex: Female
  Weight: 117.48 kg

DRUGS (3)
  1. SPRYCEL [Suspect]
     Active Substance: DASATINIB
     Indication: Philadelphia positive chronic myeloid leukaemia
     Dosage: FREQUENCY : DAILY;?
     Route: 048
     Dates: start: 202305, end: 20230619
  2. ALEVE [Concomitant]
     Active Substance: NAPROXEN SODIUM
  3. VENLAFAXINE [Concomitant]
     Active Substance: VENLAFAXINE HYDROCHLORIDE

REACTIONS (6)
  - Platelet count decreased [None]
  - Fatigue [None]
  - Fluid retention [None]
  - Joint swelling [None]
  - Gingival bleeding [None]
  - Oral pain [None]

NARRATIVE: CASE EVENT DATE: 20230619
